FAERS Safety Report 5047264-1 (Version None)
Quarter: 2006Q3

REPORT INFORMATION
  Report Type: 
  Country: None (occurrence: None)
  Receive Date: 20060711
  Receipt Date: 20060629
  Transmission Date: 20061208
  Serious: Yes (Hospitalization)
  Sender: FDA-Public Use
  Company Number: JP-JNJFOC-20060602804

PATIENT
  Sex: Female
  Weight: 42 kg

DRUGS (14)
  1. BLINDED; INFLIXIMAB, RECOMBINANT [Suspect]
     Indication: RHEUMATOID ARTHRITIS
     Route: 042
  2. PLACEBO [Suspect]
     Indication: RHEUMATOID ARTHRITIS
     Route: 042
  3. REMICADE [Suspect]
     Route: 042
  4. REMICADE [Suspect]
     Route: 042
  5. REMICADE [Suspect]
     Indication: RHEUMATOID ARTHRITIS
     Route: 042
  6. RHEUMATREX [Suspect]
     Indication: RHEUMATOID ARTHRITIS
     Dosage: START DATE BEFORE 24-NOV-05
     Route: 048
  7. PREDNISOLONE [Concomitant]
     Route: 048
  8. PREDNISOLONE [Concomitant]
     Indication: RHEUMATOID ARTHRITIS
     Dosage: START DATE BEFORE 19-JAN-06
     Route: 048
  9. VOLTAREN [Concomitant]
     Indication: RHEUMATOID ARTHRITIS
     Dosage: START DATE BEFORE 19-JAN-06
     Route: 054
  10. LORCAM [Concomitant]
     Indication: RHEUMATOID ARTHRITIS
     Dosage: START DATE BEFORE 19-JAN-06
     Route: 048
  11. TAGAMET [Concomitant]
     Indication: PROPHYLAXIS AGAINST GASTROINTESTINAL ULCER
     Dosage: START DATE BEFORE 19-JAN-06
     Route: 048
  12. AMOBAN [Concomitant]
     Indication: INSOMNIA
     Dosage: START DATE BEFORE 19-JAN-06
     Route: 048
  13. SANCOBA [Concomitant]
     Indication: CATARACT
  14. CATALIN [Concomitant]
     Indication: CATARACT

REACTIONS (1)
  - TUBERCULOSIS [None]
